FAERS Safety Report 6410602-9 (Version None)
Quarter: 2009Q4

REPORT INFORMATION
  Report Type: 
  Country: None (occurrence: None)
  Receive Date: 20091022
  Receipt Date: 20091013
  Transmission Date: 20100525
  Serious: Yes (Other)
  Sender: FDA-Public Use
  Company Number: US-BIOGENIDEC-2009BI025928

PATIENT
  Age: 55 Year
  Sex: Male

DRUGS (7)
  1. AVONEX [Suspect]
     Indication: MULTIPLE SCLEROSIS
     Route: 030
     Dates: start: 20030804
  2. NEURONTIN [Concomitant]
  3. TOPROL-XL [Concomitant]
  4. ALEVE [Concomitant]
  5. ACETAMINOPHEN [Concomitant]
  6. MV [PRESUMED MULTIVITAMINS] [Concomitant]
  7. FIBER [Concomitant]

REACTIONS (2)
  - ACTINIC KERATOSIS [None]
  - BASAL CELL CARCINOMA [None]
